FAERS Safety Report 6616172-4 (Version None)
Quarter: 2010Q1

REPORT INFORMATION
  Report Type: 
  Country: None (occurrence: None)
  Receive Date: 20100305
  Receipt Date: 20100223
  Transmission Date: 20100710
  Serious: Yes (Other)
  Sender: FDA-Public Use
  Company Number: US-PFIZER INC-2009245181

PATIENT
  Sex: Male
  Weight: 72.562 kg

DRUGS (5)
  1. VFEND [Suspect]
     Indication: PULMONARY GRANULOMA
     Dosage: 200 MG, 2X/DAY
     Dates: start: 20090717
  2. NIFEDIPINE [Concomitant]
     Dosage: UNK
  3. TENORMIN [Concomitant]
     Dosage: UNK
  4. ZYLOPRIM [Concomitant]
     Dosage: UNK
  5. COLCHICINE [Concomitant]
     Indication: GOUT
     Dosage: UNK

REACTIONS (5)
  - AGITATION [None]
  - HALLUCINATION [None]
  - INSOMNIA [None]
  - VISION BLURRED [None]
  - VISUAL IMPAIRMENT [None]
